FAERS Safety Report 4344902-3 (Version None)
Quarter: 2004Q2

REPORT INFORMATION
  Report Type: 
  Country: None (occurrence: None)
  Receive Date: 20040423
  Receipt Date: 20040416
  Transmission Date: 20050107
  Serious: Yes (Hospitalization)
  Sender: FDA-Public Use
  Company Number: 200413026US

PATIENT
  Sex: Male
  Weight: 128.38 kg

DRUGS (13)
  1. INSULIN GLARGINE [Suspect]
     Indication: DIABETES MELLITUS NON-INSULIN-DEPENDENT
     Dosage: DOSE UNIT: UNITS
     Route: 058
     Dates: start: 20030905
  2. AVANDIA [Concomitant]
     Indication: DIABETES MELLITUS
     Dosage: DOSE: UNK
     Route: 048
  3. GLUCOPHAGE [Concomitant]
     Indication: DIABETES MELLITUS
     Route: 048
  4. GLIPIZIDE [Concomitant]
     Indication: DIABETES MELLITUS
     Route: 048
  5. PRINIVIL [Concomitant]
     Indication: HYPERTENSION
     Route: 048
  6. NEURONTIN [Concomitant]
     Route: 048
  7. ZOCOR [Concomitant]
     Indication: HYPERLIPIDAEMIA
     Route: 048
  8. PAXIL [Concomitant]
     Indication: DEPRESSION
     Route: 048
  9. CARDIZEM CD [Concomitant]
     Route: 048
  10. PLAVIX [Concomitant]
     Route: 048
  11. LOPRESSOR [Concomitant]
     Route: 048
  12. PROTONIX [Concomitant]
     Route: 048
  13. NOVOLOG [Concomitant]
     Dosage: DOSE UNIT: UNITS
     Route: 058

REACTIONS (3)
  - CEREBROVASCULAR ACCIDENT [None]
  - HYPOGLYCAEMIA [None]
  - INCOHERENT [None]
